FAERS Safety Report 15784414 (Version 9)
Quarter: 2020Q4

REPORT INFORMATION
  Report Type: Other
  Country: PE (occurrence: PE)
  Receive Date: 20190103
  Receipt Date: 20201225
  Transmission Date: 20210113
  Serious: Yes (Hospitalization, Other)
  Sender: FDA-Public Use
  Company Number: PE-ROCHE-2238361

PATIENT
  Age: 11 Year
  Sex: Female
  Weight: 45 kg

DRUGS (12)
  1. XOLAIR [Suspect]
     Active Substance: OMALIZUMAB
     Route: 058
     Dates: start: 20190720
  2. LORATADINE. [Concomitant]
     Active Substance: LORATADINE
     Indication: ASTHMA
     Dosage: 1 DF CONDITIONAL
     Route: 065
     Dates: start: 2017
  3. XOLAIR [Suspect]
     Active Substance: OMALIZUMAB
     Indication: ASTHMA
     Route: 058
     Dates: start: 20181222
  4. XOLAIR [Suspect]
     Active Substance: OMALIZUMAB
     Route: 058
     Dates: start: 20181223
  5. SERETIDE [Concomitant]
     Active Substance: FLUTICASONE PROPIONATE\SALMETEROL XINAFOATE
     Indication: ASTHMA
     Dosage: 2 UNITS, Q12H
     Route: 065
     Dates: start: 2018
  6. XOLAIR [Suspect]
     Active Substance: OMALIZUMAB
     Route: 058
     Dates: start: 202003
  7. FLUTICASONE. [Concomitant]
     Active Substance: FLUTICASONE
     Indication: PRODUCT USED FOR UNKNOWN INDICATION
     Dosage: 1000 UG, QD, MEDICATION PATIENT USED SINCE YEARS AGO
     Route: 065
  8. MONTELUKAST [Concomitant]
     Active Substance: MONTELUKAST SODIUM
     Indication: ASTHMA
     Dosage: 10 MG, Q24H
     Route: 048
     Dates: start: 2018
  9. SALBUTAMOL [Concomitant]
     Active Substance: ALBUTEROL
     Indication: ASTHMA
     Dosage: 2 UNITS CONDITIONAL
     Route: 055
     Dates: start: 2009
  10. OMALIZUMAB. [Suspect]
     Active Substance: OMALIZUMAB
     Dosage: 3 DF, Q2W, (3 X 150 MG, EVERY 2 WEEKS)
     Route: 058
  11. IPRATROPIUM BROMIDE. [Concomitant]
     Active Substance: IPRATROPIUM BROMIDE
     Indication: ASTHMA
     Dosage: 2 UNITS, CONDITIONAL
     Route: 055
     Dates: start: 2011
  12. OMALIZUMAB. [Suspect]
     Active Substance: OMALIZUMAB
     Indication: PRODUCT USED FOR UNKNOWN INDICATION
     Dosage: 3 DF, Q2W, (3 X 150 MG, EVERY 2 WEEKS)
     Route: 058
     Dates: start: 20181223

REACTIONS (29)
  - Agitation [Recovered/Resolved]
  - Pyrexia [Recovered/Resolved]
  - Skin swelling [Unknown]
  - Flushing [Unknown]
  - Anaphylactoid reaction [Recovered/Resolved]
  - Oxygen saturation decreased [Recovered/Resolved]
  - Urticaria [Recovered/Resolved]
  - Urticaria [Unknown]
  - Somnolence [Recovered/Resolved]
  - Lip dry [Recovered/Resolved]
  - Lip discolouration [Unknown]
  - Dyspnoea [Recovered/Resolved]
  - Oropharyngeal pain [Recovering/Resolving]
  - Headache [Recovered/Resolved]
  - Cough [Unknown]
  - Perioral dermatitis [Unknown]
  - Angioedema [Unknown]
  - Productive cough [Recovering/Resolving]
  - Chest discomfort [Recovered/Resolved]
  - Wheezing [Recovered/Resolved]
  - Lip oedema [Recovered/Resolved]
  - Lip erythema [Recovering/Resolving]
  - Erythema [Unknown]
  - Asthmatic crisis [Recovering/Resolving]
  - Hyperventilation [Unknown]
  - Periorbital swelling [Recovered/Resolved]
  - Lip erythema [Recovered/Resolved]
  - Cheilitis [Recovered/Resolved]
  - Skin oedema [Unknown]

NARRATIVE: CASE EVENT DATE: 20181222
